FAERS Safety Report 5928601-X (Version None)
Quarter: 2008Q4

REPORT INFORMATION
  Report Type: 
  Country: None (occurrence: None)
  Receive Date: 20081023
  Receipt Date: 20081016
  Transmission Date: 20090506
  Serious: Yes (Hospitalization)
  Sender: FDA-Public Use
  Company Number: GB-WATSON-2008-06186

PATIENT
  Age: 83 Year
  Sex: Male

DRUGS (1)
  1. LIDOCAINE 1% W/ EPINEPHRINE 1:200,000 [Suspect]
     Indication: CARDIAC ARREST
     Dosage: 100 UG, SINGLE
     Route: 040

REACTIONS (4)
  - ELECTROMECHANICAL DISSOCIATION [None]
  - HAEMORRHAGE [None]
  - HYPERTENSION [None]
  - POST PROCEDURAL HAEMORRHAGE [None]
